FAERS Safety Report 5600174-0 (Version None)
Quarter: 2008Q1

REPORT INFORMATION
  Report Type: 
  Country: None (occurrence: None)
  Receive Date: 20080117
  Receipt Date: 20080117
  Transmission Date: 20080703
  Serious: Yes (Life-Threatening, Hospitalization)
  Sender: FDA-Public Use
  Company Number: None

PATIENT
  Age: 83 Year
  Sex: Male
  Weight: 77.56 kg

DRUGS (1)
  1. ATENOLOL [Suspect]
     Indication: HYPERTENSION
     Dosage: 75MG EVERY DAY PO
     Route: 048
     Dates: end: 20071109

REACTIONS (3)
  - BRADYCARDIA [None]
  - INCOHERENT [None]
  - UNRESPONSIVE TO STIMULI [None]
